FAERS Safety Report 15395921 (Version 1)
Quarter: 2018Q3

REPORT INFORMATION
  Report Type: Spontaneous
  Country: US (occurrence: US)
  Receive Date: 20180912
  Receipt Date: 20180912
  Transmission Date: 20181010
  Serious: No
  Sender: FDA-Public Use
  Company Number: None

PATIENT
  Age: 70 Year
  Sex: Female
  Weight: 56.25 kg

DRUGS (2)
  1. TOPROL XL [Suspect]
     Active Substance: METOPROLOL SUCCINATE
     Indication: BLOOD PRESSURE MEASUREMENT
     Dates: end: 201808
  2. MUTI?VITAMIN [Concomitant]

REACTIONS (6)
  - Mouth swelling [None]
  - Lip swelling [None]
  - Headache [None]
  - Gingival swelling [None]
  - Urinary retention [None]
  - Joint swelling [None]

NARRATIVE: CASE EVENT DATE: 201808
